FAERS Safety Report 14781176 (Version 1)
Quarter: 2018Q2

REPORT INFORMATION
  Report Type: Spontaneous
  Country: US (occurrence: US)
  Receive Date: 20180412
  Receipt Date: 20180412
  Transmission Date: 20180711
  Serious: Yes (Hospitalization)
  Sender: FDA-Public Use
  Company Number: None

PATIENT
  Sex: Male

DRUGS (1)
  1. VIGABATRIN 500MG PAR PHARMACEUTICAL (OPERATING COMPANY OF ENDO INTERNATIONAL PLC) [Suspect]
     Active Substance: VIGABATRIN
     Indication: EPILEPSY
     Dosage: 1000MG BID VIA G TUBE
     Dates: start: 20171023

REACTIONS (1)
  - Pyrexia [None]
